FAERS Safety Report 8682636 (Version 2)
Quarter: 2014Q3

REPORT INFORMATION
  Report Type: Spontaneous
  Country: GB (occurrence: None)
  Receive Date: 20120710
  Receipt Date: 20140716
  Transmission Date: 20150326
  Serious: Yes (Death)
  Sender: FDA-Public Use
  Company Number: 1339494

PATIENT
  Age: 57 Year
  Sex: Male

DRUGS (3)
  1. CYCLOPHOSPHAMIDE. [Suspect]
     Active Substance: CYCLOPHOSPHAMIDE
     Indication: CHRONIC LYMPHOCYTIC LEUKAEMIA
     Dosage: CYCLICAL
     Dates: start: 2007
  2. RITUXIMAB [Concomitant]
     Active Substance: RITUXIMAB
  3. FLUDARABINE PHOSPHATE. [Suspect]
     Active Substance: FLUDARABINE PHOSPHATE
     Indication: CHRONIC LYMPHOCYTIC LEUKAEMIA
     Dosage: CYCLICAL
     Dates: start: 2008

REACTIONS (7)
  - Histiocytosis haematophagic [None]
  - Immunosuppression [None]
  - Human herpesvirus 6 infection [None]
  - Neutropenic sepsis [None]
  - Splenomegaly [None]
  - No therapeutic response [None]
  - Lymphadenopathy [None]

NARRATIVE: CASE EVENT DATE: 20110515
